FAERS Safety Report 15934406 (Version 1)
Quarter: 2019Q1

REPORT INFORMATION
  Report Type: Spontaneous
  Country: US (occurrence: US)
  Receive Date: 20190207
  Receipt Date: 20190207
  Transmission Date: 20190417
  Serious: No
  Sender: FDA-Public Use
  Company Number: US-PFIZER INC-2018494390

PATIENT
  Age: 14 Year
  Sex: Male

DRUGS (1)
  1. GENOTROPIN [Suspect]
     Active Substance: SOMATROPIN
     Dosage: 1.6 MG, UNK (6 DAYS A WEEK)
     Dates: start: 20160122

REACTIONS (5)
  - Injection site pain [Unknown]
  - Strabismus [Unknown]
  - Device issue [Unknown]
  - Arthralgia [Unknown]
  - Product dose omission [Unknown]
